FAERS Safety Report 6292602-5 (Version None)
Quarter: 2009Q3

REPORT INFORMATION
  Report Type: 
  Country: None (occurrence: None)
  Receive Date: 20090729
  Receipt Date: 20090720
  Transmission Date: 20100115
  Serious: Yes (Life-Threatening, Other)
  Sender: FDA-Public Use
  Company Number: ADR10532009

PATIENT
  Age: 68 Year
  Sex: Male

DRUGS (8)
  1. AMLODIPINE [Suspect]
     Indication: HYPERTENSION
     Dosage: 5MG - 1/1DAY; ORAL;
     Route: 048
     Dates: end: 20060525
  2. AMBISOME [Suspect]
     Indication: SYSTEMIC CANDIDA
     Dosage: 1MG/KG INTRAVENOUS
     Route: 042
     Dates: start: 20060519, end: 20060602
  3. AMBISOME [Suspect]
     Indication: SYSTEMIC CANDIDA
     Dosage: 3MG/KG; INTRAVENOUS
     Route: 042
     Dates: start: 20060422, end: 20060519
  4. CETIRIZINE [Suspect]
     Indication: PRURITUS
     Dosage: 10MG - 1/1 DAY ORAL
     Route: 048
     Dates: start: 20060505
  5. CALCICHEW (CALCIUM CARBONATE, CALCIUM CARBONATE X) [Concomitant]
  6. DARBEPOETIN ALFA [Concomitant]
  7. OMEPRAZOLE [Concomitant]
  8. SODIUM BICARBONATE [Concomitant]

REACTIONS (6)
  - ARRHYTHMIA SUPRAVENTRICULAR [None]
  - ATRIAL FLUTTER [None]
  - BLOOD MAGNESIUM DECREASED [None]
  - BLOOD PRESSURE DECREASED [None]
  - HAEMOGLOBIN DECREASED [None]
  - HEART RATE INCREASED [None]
